FAERS Safety Report 17296636 (Version 1)
Quarter: 2020Q1

REPORT INFORMATION
  Report Type: Spontaneous
  Country: JP (occurrence: JP)
  Receive Date: 20200122
  Receipt Date: 20200122
  Transmission Date: 20200409
  Serious: Yes (Death, Hospitalization, Other)
  Sender: FDA-Public Use
  Company Number: JP-LUPIN PHARMACEUTICALS INC.-2020-00218

PATIENT
  Age: 84 Year
  Sex: Female

DRUGS (16)
  1. ACYCLOVIR [ACICLOVIR SODIUM] [Suspect]
     Active Substance: ACYCLOVIR
     Indication: VARICELLA ZOSTER VIRUS INFECTION
  2. SULFAMETHOXAZOLE AND TRIMETHOPRIM [Suspect]
     Active Substance: SULFAMETHOXAZOLE\TRIMETHOPRIM
     Indication: KLEBSIELLA INFECTION
     Dosage: 7.5 MILLIGRAM/KILOGRAM, QD
     Route: 065
  3. PREDNISOLONE. [Suspect]
     Active Substance: PREDNISOLONE
     Indication: PNEUMOCYSTIS JIROVECII PNEUMONIA
     Dosage: 40 MILLIGRAM, QD (TITRATED BETWEEN 10 MG AND 80 MG DAILY)
     Route: 065
  4. CEFMETAZOLE [Suspect]
     Active Substance: CEFMETAZOLE
     Indication: CORYNEBACTERIUM INFECTION
  5. VANCOMYCIN HYDROCHLORIDE. [Suspect]
     Active Substance: VANCOMYCIN HYDROCHLORIDE
     Indication: CORYNEBACTERIUM INFECTION
  6. VANCOMYCIN HYDROCHLORIDE. [Suspect]
     Active Substance: VANCOMYCIN HYDROCHLORIDE
     Indication: KLEBSIELLA INFECTION
     Dosage: 500 MILLIGRAM, QD
     Route: 065
  7. SULFAMETHOXAZOLE AND TRIMETHOPRIM [Suspect]
     Active Substance: SULFAMETHOXAZOLE\TRIMETHOPRIM
     Indication: ESCHERICHIA TEST POSITIVE
  8. PREDNISOLONE. [Suspect]
     Active Substance: PREDNISOLONE
     Dosage: 80 MILLIGRAM, QD
     Route: 065
  9. VANCOMYCIN HYDROCHLORIDE. [Suspect]
     Active Substance: VANCOMYCIN HYDROCHLORIDE
     Indication: ESCHERICHIA TEST POSITIVE
     Dosage: 1 GRAM, QD
     Route: 065
  10. CEFMETAZOLE [Suspect]
     Active Substance: CEFMETAZOLE
     Indication: ESCHERICHIA TEST POSITIVE
  11. AMPICILLIN AND SULBACTAM [Concomitant]
     Active Substance: AMPICILLIN SODIUM\SULBACTAM SODIUM
     Indication: PNEUMONIA ASPIRATION
     Dosage: 3 GRAM, BID
     Route: 065
  12. PREDNISOLONE. [Suspect]
     Active Substance: PREDNISOLONE
     Dosage: 5 MILLIGRAM, QD
     Route: 065
  13. ACYCLOVIR [ACICLOVIR SODIUM] [Suspect]
     Active Substance: ACYCLOVIR
     Indication: PNEUMOCYSTIS JIROVECII INFECTION
     Dosage: 500 MILLIGRAM, BID
     Route: 065
  14. VALACYCLOVIR HCL [Concomitant]
     Active Substance: VALACYCLOVIR HYDROCHLORIDE
     Indication: HERPES ZOSTER
     Dosage: 1 GRAM, QD
     Route: 065
  15. SULFAMETHOXAZOLE AND TRIMETHOPRIM [Suspect]
     Active Substance: SULFAMETHOXAZOLE\TRIMETHOPRIM
     Indication: CORYNEBACTERIUM INFECTION
  16. CEFMETAZOLE [Suspect]
     Active Substance: CEFMETAZOLE
     Indication: KLEBSIELLA INFECTION
     Dosage: 2 GRAM, BID
     Route: 065

REACTIONS (6)
  - Renal impairment [Fatal]
  - Pneumocystis jirovecii pneumonia [Fatal]
  - Coma [Fatal]
  - Lung disorder [Fatal]
  - General physical health deterioration [Fatal]
  - Pneumonia [Fatal]
